FAERS Safety Report 4409355-5 (Version None)
Quarter: 2004Q3

REPORT INFORMATION
  Report Type: 
  Country: None (occurrence: None)
  Receive Date: 20040723
  Receipt Date: 20040721
  Transmission Date: 20050211
  Serious: Yes (Life-Threatening, Hospitalization, Other)
  Sender: FDA-Public Use
  Company Number: 04-07-1040

PATIENT
  Age: 33 Week
  Sex: Male
  Weight: 2.6 kg

DRUGS (4)
  1. FLUOXETINE [Suspect]
     Route: 064
  2. TRIMETHOPRIM ORAL [Concomitant]
  3. HUMAN ACTRAPID [Concomitant]
  4. INSULIN PORCINE [Concomitant]

REACTIONS (5)
  - DRUG EXPOSURE DURING PREGNANCY [None]
  - DRUG EXPOSURE VIA BREAST MILK [None]
  - HYPOGLYCAEMIA NEONATAL [None]
  - INTRAVENTRICULAR HAEMORRHAGE [None]
  - IRRITABILITY [None]
